FAERS Safety Report 18608092 (Version 1)
Quarter: 2020Q4

REPORT INFORMATION
  Report Type: Report from Study
  Country: US (occurrence: US)
  Receive Date: 20201212
  Receipt Date: 20201212
  Transmission Date: 20210114
  Serious: Yes (Hospitalization, Other)
  Sender: FDA-Public Use
  Company Number: US-SHIRE-US202032275

PATIENT
  Sex: Male

DRUGS (3)
  1. TEDUGLUTIDE [Suspect]
     Active Substance: TEDUGLUTIDE
     Dosage: 2.47 MILLIGRAM, QD
     Route: 058
     Dates: start: 202009
  2. TEDUGLUTIDE [Suspect]
     Active Substance: TEDUGLUTIDE
     Indication: SHORT-BOWEL SYNDROME
     Dosage: 2.47 MILLIGRAM, QD
     Route: 058
     Dates: start: 20200909
  3. TEDUGLUTIDE [Suspect]
     Active Substance: TEDUGLUTIDE
     Dosage: 0.247 INTERNATIONAL UNIT
     Route: 058
     Dates: start: 20200910

REACTIONS (2)
  - Vascular device infection [Unknown]
  - Intestinal obstruction [Unknown]
